FAERS Safety Report 6406614-1 (Version None)
Quarter: 2009Q4

REPORT INFORMATION
  Report Type: 
  Country: None (occurrence: None)
  Receive Date: 20091014
  Receipt Date: 20091001
  Transmission Date: 20100525
  Serious: Yes (Other)
  Sender: FDA-Public Use
  Company Number: 2009AP003753

PATIENT
  Age: 45 Year
  Sex: Female

DRUGS (6)
  1. MYCOPHENOLATE MOFETIL [Suspect]
  2. PREDNISOLONE [Suspect]
  3. CAMPATH [Concomitant]
  4. FLUDARABINE PHOSPHATE [Concomitant]
  5. MELPHALAN (MELPHALAN) [Concomitant]
  6. CYCLOSPORINE [Suspect]

REACTIONS (3)
  - GASTROENTERITIS NOROVIRUS [None]
  - GRAFT VERSUS HOST DISEASE [None]
  - GRAFT VERSUS HOST DISEASE IN LUNG [None]
